FAERS Safety Report 13941642 (Version 9)
Quarter: 2018Q3

REPORT INFORMATION
  Report Type: Report from Study
  Country: US (occurrence: US)
  Receive Date: 20170906
  Receipt Date: 20180921
  Transmission Date: 20181010
  Serious: Yes (Hospitalization)
  Sender: FDA-Public Use
  Company Number: US-ACTELION-A-US2017-154800

PATIENT
  Age: 62 Year
  Sex: Female

DRUGS (16)
  1. DILANTIN [Concomitant]
     Active Substance: PHENYTOIN
  2. ADVAIR HFA [Concomitant]
     Active Substance: FLUTICASONE PROPIONATE\SALMETEROL XINAFOATE
  3. DILTIAZEM. [Concomitant]
     Active Substance: DILTIAZEM
  4. DOXYCYCLINE. [Concomitant]
     Active Substance: DOXYCYCLINE
  5. NEURONTIN [Concomitant]
     Active Substance: GABAPENTIN
  6. XARELTO [Concomitant]
     Active Substance: RIVAROXABAN
  7. MEZOLE [Concomitant]
  8. MUCINEX [Concomitant]
     Active Substance: GUAIFENESIN
  9. SEROQUEL [Concomitant]
     Active Substance: QUETIAPINE FUMARATE
  10. SPIRIVA [Concomitant]
     Active Substance: TIOTROPIUM BROMIDE MONOHYDRATE
  11. ZANTAC [Concomitant]
     Active Substance: RANITIDINE HYDROCHLORIDE
  12. ALLOPURINOL. [Concomitant]
     Active Substance: ALLOPURINOL
  13. OPSUMIT [Suspect]
     Active Substance: MACITENTAN
     Indication: PULMONARY ARTERIAL HYPERTENSION
     Dosage: 10 MG, QD
     Route: 048
     Dates: start: 20170508
  14. FERROUS SULFATE. [Concomitant]
     Active Substance: FERROUS SULFATE
  15. OMEPRAZOLE. [Concomitant]
     Active Substance: OMEPRAZOLE
  16. XANAX [Concomitant]
     Active Substance: ALPRAZOLAM

REACTIONS (11)
  - Productive cough [Not Recovered/Not Resolved]
  - Pneumonia [Unknown]
  - Internal haemorrhage [Unknown]
  - Secretion discharge [Unknown]
  - Rhinorrhoea [Not Recovered/Not Resolved]
  - Nasal congestion [Not Recovered/Not Resolved]
  - Nasopharyngitis [Not Recovered/Not Resolved]
  - Pneumothorax [Recovering/Resolving]
  - Dyspnoea [Unknown]
  - Head discomfort [Not Recovered/Not Resolved]
  - Peripheral swelling [Unknown]

NARRATIVE: CASE EVENT DATE: 20170530
